FAERS Safety Report 17120773 (Version 1)
Quarter: 2019Q4

REPORT INFORMATION
  Report Type: Spontaneous
  Country: CN (occurrence: CN)
  Receive Date: 20191206
  Receipt Date: 20191206
  Transmission Date: 20200122
  Serious: Yes (Other)
  Sender: FDA-Public Use
  Company Number: CN-ASTRAZENECA-2019SF71763

PATIENT
  Age: 45 Year
  Sex: Male

DRUGS (2)
  1. GEFITINIB. [Suspect]
     Active Substance: GEFITINIB
     Indication: NON-SMALL CELL LUNG CANCER
     Route: 048
     Dates: start: 201606, end: 201802
  2. OSIMERTINIB. [Suspect]
     Active Substance: OSIMERTINIB
     Indication: NON-SMALL CELL LUNG CANCER
     Route: 048
     Dates: start: 201803

REACTIONS (5)
  - Acquired gene mutation [Unknown]
  - Metastases to lymph nodes [Recovering/Resolving]
  - Malignant neoplasm progression [Recovering/Resolving]
  - Metastases to lung [Recovering/Resolving]
  - Drug resistance [Unknown]
